FAERS Safety Report 21736003 (Version 1)
Quarter: 2022Q4

REPORT INFORMATION
  Report Type: Spontaneous
  Country: CA (occurrence: CA)
  Receive Date: 20221215
  Receipt Date: 20221215
  Transmission Date: 20230113
  Serious: Yes (Hospitalization, Other)
  Sender: FDA-Public Use
  Company Number: E2B_03446959

PATIENT
  Age: 67 Year
  Sex: Male

DRUGS (17)
  1. TRAMADOL HYDROCHLORIDE [Suspect]
     Active Substance: TRAMADOL HYDROCHLORIDE
     Indication: Product used for unknown indication
  2. LEVOFLOXACIN [Suspect]
     Active Substance: LEVOFLOXACIN
     Indication: Product used for unknown indication
  3. MEPOLIZUMAB [Suspect]
     Active Substance: MEPOLIZUMAB
     Indication: Product used for unknown indication
  4. PREDNISONE [Suspect]
     Active Substance: PREDNISONE
     Indication: Product used for unknown indication
  5. PULMICORT TURBUHALER [Suspect]
     Active Substance: BUDESONIDE
     Indication: Product used for unknown indication
  6. SINGULAIR [Suspect]
     Active Substance: MONTELUKAST SODIUM
     Indication: Product used for unknown indication
  7. SPIRIVA [Suspect]
     Active Substance: TIOTROPIUM BROMIDE MONOHYDRATE
     Indication: Product used for unknown indication
  8. PREDNISONE [Suspect]
     Active Substance: PREDNISONE
     Indication: Product used for unknown indication
  9. ZAFIRLUKAST [Suspect]
     Active Substance: ZAFIRLUKAST
     Indication: Product used for unknown indication
  10. ADVAIR HFA [Suspect]
     Active Substance: FLUTICASONE PROPIONATE\SALMETEROL XINAFOATE
     Indication: Product used for unknown indication
  11. AMOXICILLIN AND CLAVULANATE POTASSIUM [Concomitant]
     Active Substance: AMOXICILLIN\CLAVULANATE POTASSIUM
     Indication: Product used for unknown indication
  12. BREO ELLIPTA [Suspect]
     Active Substance: FLUTICASONE FUROATE\VILANTEROL TRIFENATATE
     Indication: Product used for unknown indication
  13. BUDESONIDE [Suspect]
     Active Substance: BUDESONIDE
     Indication: Product used for unknown indication
  14. DYMISTA [Suspect]
     Active Substance: AZELASTINE HYDROCHLORIDE\FLUTICASONE PROPIONATE
     Indication: Product used for unknown indication
  15. FLUTICASONE PROPIONATE\SALMETEROL XINAFOATE [Suspect]
     Active Substance: FLUTICASONE PROPIONATE\SALMETEROL XINAFOATE
     Indication: Product used for unknown indication
  16. GLYCOPYRROLATE [Suspect]
     Active Substance: GLYCOPYRROLATE
     Indication: Product used for unknown indication
     Dosage: 2 EVERY 1 DAYS
  17. ALBUTEROL SULFATE\IPRATROPIUM BROMIDE [Suspect]
     Active Substance: ALBUTEROL SULFATE\IPRATROPIUM BROMIDE
     Indication: Product used for unknown indication

REACTIONS (27)
  - Dyspnoea [Unknown]
  - Dyspnoea exertional [Unknown]
  - Emphysema [Unknown]
  - Fatigue [Unknown]
  - Hiatus hernia [Unknown]
  - Infection [Unknown]
  - Loss of personal independence in daily activities [Unknown]
  - Pneumonia [Unknown]
  - Precancerous condition [Unknown]
  - Productive cough [Unknown]
  - Aphonia [Unknown]
  - Prolonged expiration [Unknown]
  - Pulmonary mass [Unknown]
  - Pyrexia [Unknown]
  - Respiratory disorder [Unknown]
  - Sputum discoloured [Unknown]
  - Sputum purulent [Unknown]
  - Tachycardia [Unknown]
  - Upper respiratory tract infection [Unknown]
  - Wheezing [Unknown]
  - Asthenia [Unknown]
  - Asthma [Unknown]
  - Chest discomfort [Unknown]
  - Chills [Unknown]
  - Chronic sinusitis [Unknown]
  - Disease progression [Unknown]
  - Dry skin [Unknown]
